FAERS Safety Report 5376331-8 (Version None)
Quarter: 2007Q3

REPORT INFORMATION
  Report Type: 
  Country: None (occurrence: None)
  Receive Date: 20070702
  Receipt Date: 20070622
  Transmission Date: 20080115
  Serious: Yes (Death, Life-Threatening, Hospitalization)
  Sender: FDA-Public Use
  Company Number: JP-AMGEN-US216223

PATIENT
  Sex: Female
  Weight: 41 kg

DRUGS (7)
  1. ENBREL [Suspect]
     Indication: RHEUMATOID ARTHRITIS
     Route: 058
     Dates: start: 20060908, end: 20070202
  2. ALFAROL [Concomitant]
     Route: 048
     Dates: start: 20060525, end: 20070204
  3. PREDNISOLONE [Concomitant]
     Indication: RHEUMATOID ARTHRITIS
     Dosage: 2.5-9 MG/DAY
     Route: 048
     Dates: start: 20060511, end: 20070204
  4. PREDNISOLONE [Concomitant]
     Dosage: INCREASED UP TO 10 MG/DAY IN 2000
  5. MUCOSTA [Concomitant]
     Route: 048
     Dates: start: 20060608, end: 20070204
  6. SHIOSOL [Concomitant]
     Indication: RHEUMATOID ARTHRITIS
     Route: 030
     Dates: start: 20060803, end: 20070202
  7. HYPEN [Concomitant]
     Indication: RHEUMATOID ARTHRITIS
     Route: 048
     Dates: start: 20060731, end: 20070204

REACTIONS (9)
  - ACUTE ABDOMEN [None]
  - BRONCHOPULMONARY ASPERGILLOSIS [None]
  - GASTRIC ULCER [None]
  - INTESTINAL OBSTRUCTION [None]
  - LARGE INTESTINAL ULCER [None]
  - LUNG INFECTION PSEUDOMONAL [None]
  - PANCREATITIS ACUTE [None]
  - SHOCK [None]
  - SPINAL COMPRESSION FRACTURE [None]
